FAERS Safety Report 13373107 (Version 1)
Quarter: 2017Q1

REPORT INFORMATION
  Report Type: Spontaneous
  Country: US (occurrence: US)
  Receive Date: 20170325
  Receipt Date: 20170325
  Transmission Date: 20170429
  Serious: Yes (Life-Threatening, Hospitalization)
  Sender: FDA-Public Use
  Company Number: None

PATIENT
  Age: 62 Year
  Sex: Female
  Weight: 81 kg

DRUGS (20)
  1. LANSOPRAZOLE (PREVACID) [Concomitant]
  2. CLACIUM CARBONATE-VITAMIN D(CALTRATE+D) [Concomitant]
  3. L-LYSINE [Concomitant]
     Active Substance: LYSINE
  4. CYMBALTA [Concomitant]
     Active Substance: DULOXETINE HYDROCHLORIDE
  5. NEURONTIN [Suspect]
     Active Substance: GABAPENTIN
  6. MIRALAX [Concomitant]
     Active Substance: POLYETHYLENE GLYCOL 3350
  7. SYMBICORT [Concomitant]
     Active Substance: BUDESONIDE\FORMOTEROL FUMARATE DIHYDRATE
  8. TYLENOL [Concomitant]
     Active Substance: ACETAMINOPHEN
  9. PROAIR HFA [Concomitant]
     Active Substance: ALBUTEROL SULFATE
  10. ZOCOR [Concomitant]
     Active Substance: SIMVASTATIN
  11. OSPEMIFENE [Suspect]
     Active Substance: OSPEMIFENE
     Indication: PRODUCT USED FOR UNKNOWN INDICATION
     Route: 048
  12. LURASIDONE (LATUDA) [Concomitant]
  13. PHENYTOIN (DILANTIN) ER [Concomitant]
     Active Substance: PHENYTOIN
  14. LEVAQUIN [Concomitant]
     Active Substance: LEVOFLOXACIN
  15. GUAIFENESIN AC [Concomitant]
     Active Substance: CODEINE PHOSPHATE\GUAIFENESIN
  16. ZOFRAN [Concomitant]
     Active Substance: ONDANSETRON HYDROCHLORIDE
  17. DOXEPIN (SINEQUAN) [Concomitant]
  18. VALACYCLOVIR (VALTREX) [Concomitant]
  19. FOSAMAX [Concomitant]
     Active Substance: ALENDRONATE SODIUM
  20. BENTYL [Concomitant]
     Active Substance: DICYCLOMINE HYDROCHLORIDE

REACTIONS (1)
  - Deep vein thrombosis [None]

NARRATIVE: CASE EVENT DATE: 20170306
